FAERS Safety Report 8883062 (Version 1)
Quarter: 2012Q4

REPORT INFORMATION
  Report Type: 
  Country: BR (occurrence: BR)
  Receive Date: 20121104
  Receipt Date: 20121104
  Transmission Date: 20130627
  Serious: Yes (Other)
  Sender: FDA-Public Use
  Company Number: BR-JNJFOC-20121016745

PATIENT
  Age: 40 None
  Sex: Male
  Weight: 65 kg

DRUGS (1)
  1. REMICADE [Suspect]
     Indication: ANKYLOSING SPONDYLITIS
     Route: 042
     Dates: start: 2009, end: 20120914

REACTIONS (3)
  - Osteoporosis [Unknown]
  - Intervertebral disc compression [Unknown]
  - Hypersensitivity [Recovered/Resolved]
